FAERS Safety Report 18358711 (Version 2)
Quarter: 2020Q4

REPORT INFORMATION
  Report Type: Spontaneous
  Country: US (occurrence: US)
  Receive Date: 20201008
  Receipt Date: 20201229
  Transmission Date: 20210114
  Serious: No
  Sender: FDA-Public Use
  Company Number: US-KARYOPHARM-2020KPT001148

PATIENT

DRUGS (2)
  1. XPOVIO [Suspect]
     Active Substance: SELINEXOR
     Dosage: 60 MG, WEEKLY
     Route: 048
     Dates: start: 202012
  2. XPOVIO [Suspect]
     Active Substance: SELINEXOR
     Indication: PLASMA CELL MYELOMA
     Dosage: 40 MG, WEEKLY
     Route: 048
     Dates: start: 20200916

REACTIONS (15)
  - White blood cell count decreased [Not Recovered/Not Resolved]
  - Night sweats [Unknown]
  - Dyspnoea [Unknown]
  - Fatigue [Unknown]
  - Neutrophil count decreased [Unknown]
  - Osteoarthritis [Not Recovered/Not Resolved]
  - Blood sodium decreased [Unknown]
  - Rhinorrhoea [Unknown]
  - Blood pressure increased [Recovered/Resolved]
  - Red blood cell count decreased [Unknown]
  - Hot flush [Unknown]
  - Blood creatinine increased [Unknown]
  - Wheezing [Unknown]
  - Muscle oedema [Unknown]
  - Insomnia [Unknown]

NARRATIVE: CASE EVENT DATE: 202009
